FAERS Safety Report 7705937-3 (Version None)
Quarter: 2011Q3

REPORT INFORMATION
  Report Type: 
  Country: None (occurrence: None)
  Receive Date: 20110824
  Receipt Date: 20110817
  Transmission Date: 20111222
  Serious: Yes (Hospitalization)
  Sender: FDA-Public Use
  Company Number: DE-SANOFI-AVENTIS-2011SA053296

PATIENT
  Age: 70 Year
  Sex: Female

DRUGS (9)
  1. MULTAQ [Suspect]
     Indication: ATRIAL FIBRILLATION
     Route: 065
  2. BISOPROLOL FUMARATE [Concomitant]
     Route: 065
  3. AMLODIPINE [Concomitant]
     Route: 065
  4. ASPIRIN [Concomitant]
     Route: 065
  5. SIMAVASTATIN [Concomitant]
     Route: 065
  6. LISINOPRIL [Concomitant]
     Route: 065
  7. FORMOTEROL FUMARATE [Concomitant]
     Route: 065
  8. HYDROCHLOROTHIAZIDE [Concomitant]
     Route: 065
  9. IPRATROPIUM BROMIDE [Concomitant]
     Route: 065

REACTIONS (8)
  - HEPATIC ENCEPHALOPATHY [None]
  - MENTAL STATUS CHANGES [None]
  - ACUTE HEPATIC FAILURE [None]
  - COAGULOPATHY [None]
  - HYPERBILIRUBINAEMIA [None]
  - JAUNDICE [None]
  - FATIGUE [None]
  - HEPATIC CIRRHOSIS [None]
